FAERS Safety Report 5066403-X (Version None)
Quarter: 2006Q3

REPORT INFORMATION
  Report Type: 
  Country: None (occurrence: None)
  Receive Date: 20060801
  Receipt Date: 20060727
  Transmission Date: 20061208
  Serious: Yes (Life-Threatening, Other)
  Sender: FDA-Public Use
  Company Number: CA-BAYER-200613233GDS

PATIENT

DRUGS (1)
  1. TRASYLOL [Suspect]
     Indication: HEART TRANSPLANT
     Route: 065
     Dates: start: 20060609

REACTIONS (5)
  - ANAPHYLACTIC SHOCK [None]
  - BLOOD PRESSURE DECREASED [None]
  - BRONCHOSPASM [None]
  - OEDEMA PERIPHERAL [None]
  - RASH [None]
